FAERS Safety Report 7133640 (Version 2)
Quarter: 2016Q1

REPORT INFORMATION
  Report Type: Report from Study
  Country: KR (occurrence: KR)
  Receive Date: 20090929
  Receipt Date: 20160229
  Transmission Date: 20160526
  Serious: Yes (Death)
  Sender: FDA-Public Use
  Company Number: KR-ROCHE-658613

PATIENT
  Age: 70 Year
  Sex: Male
  Weight: 67.6 kg

DRUGS (20)
  1. HEDERA HELIX [Concomitant]
     Active Substance: HEDERA HELIX FLOWERING TWIG
     Indication: COUGH
     Route: 065
     Dates: start: 20090411, end: 20090415
  2. MANNITOL. [Concomitant]
     Active Substance: MANNITOL
     Indication: PREMEDICATION
     Route: 065
     Dates: start: 20090415, end: 20090415
  3. AXITINIB [Suspect]
     Active Substance: AXITINIB
     Indication: GASTRIC CANCER
     Route: 048
     Dates: start: 20090415, end: 20090428
  4. BACLOFEN. [Concomitant]
     Active Substance: BACLOFEN
     Indication: HICCUPS
     Route: 065
  5. CISPLATIN. [Suspect]
     Active Substance: CISPLATIN
     Indication: GASTRIC CANCER
     Dosage: DAY 1, EVERY 21 DAYS
     Route: 042
     Dates: start: 20090415, end: 20090415
  6. COZAAR [Concomitant]
     Active Substance: LOSARTAN POTASSIUM
     Indication: HYPERTENSION
     Route: 065
  7. MAXOLON [Concomitant]
     Active Substance: METOCLOPRAMIDE HYDROCHLORIDE
     Indication: NAUSEA
     Route: 065
  8. MONILAC [Concomitant]
     Active Substance: LACTULOSE
     Indication: CONSTIPATION
     Route: 065
  9. LEVOPRIDE [Concomitant]
     Indication: DYSPEPSIA
     Route: 065
     Dates: start: 2009, end: 20090414
  10. RECOMIDE [Concomitant]
     Indication: DYSPEPSIA
     Route: 065
     Dates: start: 20090407, end: 20090414
  11. DEXAMETHASONE. [Concomitant]
     Active Substance: DEXAMETHASONE
     Route: 065
     Dates: start: 20090415, end: 20090418
  12. ASPIRIN PROTECT [Concomitant]
     Active Substance: ASPIRIN
     Indication: ANTICOAGULANT THERAPY
     Route: 065
  13. MEGESTROL ACETATE. [Concomitant]
     Active Substance: MEGESTROL ACETATE
     Indication: DECREASED APPETITE
     Route: 065
  14. MOKTIN [Concomitant]
     Indication: PRODUCTIVE COUGH
     Route: 065
     Dates: start: 20090413, end: 20090414
  15. PARIET [Concomitant]
     Active Substance: RABEPRAZOLE SODIUM
     Indication: DYSPEPSIA
     Route: 065
  16. CRESTOR [Concomitant]
     Active Substance: ROSUVASTATIN CALCIUM
     Indication: HYPERLIPIDAEMIA
     Route: 065
  17. ULCERMIN (SOUTH KOREA) [Concomitant]
     Indication: DYSPEPSIA
     Route: 065
  18. ALOXI [Concomitant]
     Active Substance: PALONOSETRON HYDROCHLORIDE
     Indication: NAUSEA
     Route: 065
     Dates: start: 20090415, end: 20090415
  19. CAPECITABINE. [Suspect]
     Active Substance: CAPECITABINE
     Indication: GASTRIC CANCER
     Dosage: DAY 1 TO DAY 14, EVERY 21 DAYS.
     Route: 048
     Dates: start: 20090415, end: 20090428
  20. DILATREND [Concomitant]
     Active Substance: CARVEDILOL
     Route: 065
     Dates: start: 20090414

REACTIONS (1)
  - Aortic aneurysm rupture [Fatal]

NARRATIVE: CASE EVENT DATE: 20090428
